FAERS Safety Report 6891883-4 (Version None)
Quarter: 2010Q3

REPORT INFORMATION
  Report Type: 
  Country: None (occurrence: None)
  Receive Date: 20100731
  Receipt Date: 20071121
  Transmission Date: 20110219
  Serious: No
  Sender: FDA-Public Use
  Company Number: US-PFIZER INC-2007098857

PATIENT
  Sex: Male
  Weight: 81.65 kg

DRUGS (10)
  1. CAVERJECT [Suspect]
     Indication: ERECTILE DYSFUNCTION
  2. INSULIN [Concomitant]
  3. FOLIC ACID [Concomitant]
  4. FOSINOPRIL SODIUM [Concomitant]
  5. ACETAZOLAMIDE [Concomitant]
  6. SIMVASTATIN [Concomitant]
  7. ACETYLSALICYLIC ACID SRT [Concomitant]
  8. ASCORBIC ACID [Concomitant]
  9. CAVERJECT DUAL CHAMBER SYRINGE [Concomitant]
     Route: 051
  10. ALL OTHER THERAPEUTIC PRODUCTS [Concomitant]
     Indication: ERECTILE DYSFUNCTION

REACTIONS (4)
  - INJECTION SITE DISCOLOURATION [None]
  - INJECTION SITE DISCOMFORT [None]
  - INJECTION SITE HAEMORRHAGE [None]
  - INJECTION SITE PAIN [None]
